FAERS Safety Report 10580802 (Version 1)
Quarter: 2014Q4

REPORT INFORMATION
  Report Type: Spontaneous
  Country: US (occurrence: US)
  Receive Date: 20141113
  Receipt Date: 20141113
  Transmission Date: 20150529
  Serious: No
  Sender: FDA-Public Use
  Company Number: US-BIOGENIDEC-2014BI116721

PATIENT
  Sex: Female

DRUGS (1)
  1. TECFIDERA [Suspect]
     Active Substance: DIMETHYL FUMARATE
     Indication: MULTIPLE SCLEROSIS
     Dates: start: 20141010

REACTIONS (5)
  - Chromaturia [Unknown]
  - Pruritus [Unknown]
  - Abdominal discomfort [Unknown]
  - Urine abnormality [Unknown]
  - Flushing [Unknown]
